FAERS Safety Report 9143444 (Version 1)
Quarter: 2013Q1

REPORT INFORMATION
  Report Type: Spontaneous
  Country: US (occurrence: US)
  Receive Date: 20130306
  Receipt Date: 20130306
  Transmission Date: 20140127
  Serious: Yes (Other)
  Sender: FDA-Public Use
  Company Number: US-PFIZER INC-2013076931

PATIENT
  Age: 89 Year
  Sex: Male
  Weight: 90.7 kg

DRUGS (8)
  1. LIPITOR [Suspect]
     Indication: BLOOD CHOLESTEROL INCREASED
     Dosage: 20 MG, 1X/DAY
     Route: 048
     Dates: start: 1998
  2. ALLOPURINOL [Concomitant]
     Dosage: 100 MG, 1X/DAY
  3. DIGOXIN [Concomitant]
     Dosage: 1.25 MG, UNK
  4. FINASTERIDE [Concomitant]
     Indication: PROSTATIC DISORDER
     Dosage: 5 MG, UNK
  5. FUROSEMIDE [Concomitant]
     Dosage: 40 MG, UNK
  6. METOPROLOL [Concomitant]
     Dosage: 100 MG, UNK
  7. WARFARIN [Concomitant]
     Dosage: 5 MG, UNK
  8. TRAMADOL [Concomitant]
     Dosage: 50 MG, AS NEEDED

REACTIONS (1)
  - Delirium [Unknown]
